FAERS Safety Report 7509169-3 (Version None)
Quarter: 2011Q2

REPORT INFORMATION
  Report Type: 
  Country: None (occurrence: None)
  Receive Date: 20110527
  Receipt Date: 20100617
  Transmission Date: 20111010
  Serious: No
  Sender: FDA-Public Use
  Company Number: US-MYLANLABS-2010S1010952

PATIENT
  Age: 74 Year
  Sex: Female
  Weight: 61.24 kg

DRUGS (8)
  1. AMITRIPTYLINE HCL [Suspect]
     Route: 048
     Dates: start: 20100201, end: 20100616
  2. METOPROLOL TARTRATE [Concomitant]
     Indication: HYPERTENSION
  3. AMITRIPTYLINE HCL [Suspect]
     Route: 048
     Dates: start: 20081001, end: 20100201
  4. PREMARIN [Concomitant]
     Route: 061
  5. AMITRIPTYLINE HCL [Suspect]
     Indication: ANXIETY
     Route: 048
     Dates: start: 20080929, end: 20081001
  6. CLOBETASOL PROPIONATE [Concomitant]
     Route: 061
  7. TRIAMTERENE [Concomitant]
     Indication: HYPERTENSION
  8. FOSAMAX [Concomitant]
     Indication: OSTEOARTHRITIS
     Dates: start: 20020101, end: 20100501

REACTIONS (6)
  - PHARYNGEAL OEDEMA [None]
  - BALANCE DISORDER [None]
  - THROAT IRRITATION [None]
  - COUGH [None]
  - DIZZINESS [None]
  - DYSPHONIA [None]
